FAERS Safety Report 4910836-6 (Version None)
Quarter: 2006Q1

REPORT INFORMATION
  Report Type: 
  Country: None (occurrence: None)
  Receive Date: 20060214
  Receipt Date: 20050922
  Transmission Date: 20060701
  Serious: Yes (Life-Threatening)
  Sender: FDA-Public Use
  Company Number: JP-JPN-A20052248

PATIENT
  Age: 83 Year
  Sex: Female
  Weight: 43 kg

DRUGS (2)
  1. VALTREX [Suspect]
     Indication: HERPES ZOSTER
     Dosage: 500MG THREE TIMES PER DAY
     Route: 048
     Dates: start: 20050917, end: 20050918
  2. ZOVIRAX [Suspect]
     Indication: HERPES ZOSTER
     Dosage: 125MG PER DAY
     Route: 042
     Dates: start: 20050918, end: 20050919

REACTIONS (6)
  - DEPRESSED LEVEL OF CONSCIOUSNESS [None]
  - DYSARTHRIA [None]
  - DYSKINESIA [None]
  - EXCITABILITY [None]
  - INCOHERENT [None]
  - PLATELET COUNT DECREASED [None]
